FAERS Safety Report 8995433 (Version 1)
Quarter: 2013Q1

REPORT INFORMATION
  Report Type: Spontaneous
  Country: US (occurrence: US)
  Receive Date: 20130103
  Receipt Date: 20130103
  Transmission Date: 20140127
  Serious: No
  Sender: FDA-Public Use
  Company Number: US-ABBOTT-12P-163-0914734-00

PATIENT
  Sex: Male
  Weight: 77.18 kg

DRUGS (4)
  1. SYNTHROID [Suspect]
     Indication: HYPOTHYROIDISM
     Dates: start: 20110601
  2. LITHIUM [Concomitant]
     Indication: BIPOLAR DISORDER
  3. CLONAZEPAM [Concomitant]
     Indication: INSOMNIA
     Dates: start: 201201
  4. CLONAZEPAM [Concomitant]
     Dates: end: 201201

REACTIONS (3)
  - Insomnia [Recovered/Resolved]
  - Fatigue [Not Recovered/Not Resolved]
  - Gait disturbance [Not Recovered/Not Resolved]
